FAERS Safety Report 8773198 (Version 2)
Quarter: 2012Q4

REPORT INFORMATION
  Report Type: 
  Country: AU (occurrence: AU)
  Receive Date: 20120908
  Receipt Date: 20121025
  Transmission Date: 20130627
  Serious: Yes (Death, Hospitalization, Other)
  Sender: FDA-Public Use
  Company Number: AU-B.I. PHARMACEUTICALS,INC./RIDGEFIELD-2012-AU-01568AU

PATIENT
  Age: 84 Year
  Sex: Male

DRUGS (8)
  1. PRADAXA [Suspect]
     Indication: CEREBROVASCULAR ACCIDENT PROPHYLAXIS
     Dosage: 220 mg
     Dates: start: 20111002, end: 20120524
  2. PRADAXA [Suspect]
     Indication: ATRIAL FIBRILLATION
  3. ALDACTONE [Concomitant]
     Dosage: 50 mg
  4. ALLOPURINOL [Concomitant]
     Dosage: 300 mg
  5. CHOLECALCIFEROL [Concomitant]
     Dosage: 25 mcg
  6. FRUSEMIDE [Concomitant]
     Dosage: 40 mg
  7. LANOXIN-PG [Concomitant]
     Dosage: 62.5 mcg
  8. PARACETAMOL [Concomitant]
     Dosage: 2 TAblets 4-6 hourly as required

REACTIONS (8)
  - Pneumonia aspiration [Fatal]
  - Hip fracture [Recovered/Resolved]
  - Squamous cell carcinoma [Unknown]
  - Fall [Unknown]
  - Dysphagia [Unknown]
  - Asthenia [Unknown]
  - Immobile [Unknown]
  - Wound infection [Unknown]
